FAERS Safety Report 7929886 (Version 3)
Quarter: 2014Q2

REPORT INFORMATION
  Report Type: Spontaneous
  Country: US (occurrence: US)
  Receive Date: 20110504
  Receipt Date: 20140507
  Transmission Date: 20141212
  Serious: Yes (Hospitalization, Other)
  Sender: FDA-Public Use
  Company Number: US-ROCHE-743238

PATIENT
  Age: 22 Year
  Sex: Female
  Weight: 63.5 kg

DRUGS (1)
  1. ACCUTANE [Suspect]
     Indication: ACNE
     Route: 065
     Dates: start: 19980101, end: 20000101

REACTIONS (19)
  - Crohn^s disease [Unknown]
  - Gastrointestinal injury [Unknown]
  - Depression [Unknown]
  - Colitis ulcerative [Unknown]
  - Intestinal obstruction [Unknown]
  - Inflammatory bowel disease [Unknown]
  - Suicidal ideation [Unknown]
  - Irritable bowel syndrome [Unknown]
  - Rheumatoid arthritis [Unknown]
  - Osteoarthritis [Unknown]
  - Headache [Unknown]
  - Dry eye [Unknown]
  - Nasal dryness [Unknown]
  - Epistaxis [Unknown]
  - Chapped lips [Unknown]
  - Blood triglycerides increased [Unknown]
  - Abdominal pain [Unknown]
  - Urticaria [Unknown]
  - Blister [Unknown]
